FAERS Safety Report 23348111 (Version 1)
Quarter: 2023Q4

REPORT INFORMATION
  Report Type: Spontaneous
  Country: US (occurrence: None)
  Receive Date: 20231228
  Receipt Date: 20231228
  Transmission Date: 20240109
  Serious: Yes (Other)
  Sender: FDA-Public Use
  Company Number: None

PATIENT
  Age: 19 Year
  Sex: Female
  Weight: 66.7 kg

DRUGS (2)
  1. YUFLYMA [Suspect]
     Active Substance: ADALIMUMAB-AATY
     Indication: Psoriatic arthropathy
     Dosage: OTHER FREQUENCY : Q 14 DAYS;?
     Route: 058
  2. YUFLYMA [Suspect]
     Active Substance: ADALIMUMAB-AATY
     Indication: Psoriatic arthropathy

REACTIONS (4)
  - Injection site pain [None]
  - Injection site irritation [None]
  - Hypoaesthesia oral [None]
  - Therapeutic response changed [None]

NARRATIVE: CASE EVENT DATE: 20231122
